FAERS Safety Report 4805500-8 (Version None)
Quarter: 2005Q4

REPORT INFORMATION
  Report Type: 
  Country: None (occurrence: None)
  Receive Date: 20051018
  Receipt Date: 20051003
  Transmission Date: 20060501
  Serious: Yes (Hospitalization, Disabling, Other)
  Sender: FDA-Public Use
  Company Number: 2005-0008763

PATIENT
  Age: 39 Year
  Sex: Male
  Weight: 48 kg

DRUGS (6)
  1. VIREAD [Suspect]
     Indication: HIV INFECTION
     Dosage: 300 MG, 1 IN 1 D, ORAL
     Route: 048
     Dates: start: 20050101, end: 20050801
  2. DIDANOSINE [Concomitant]
  3. RITONAVIR (RITONAVIR) [Concomitant]
  4. ATAZANAVIR (ATAZANAVIR) [Concomitant]
  5. BACTRIM [Concomitant]
  6. ATORVASTATIN CALCIUM [Concomitant]

REACTIONS (3)
  - FANCONI SYNDROME [None]
  - OSTEOMALACIA [None]
  - RENAL IMPAIRMENT [None]
